FAERS Safety Report 10753734 (Version 1)
Quarter: 2015Q1

REPORT INFORMATION
  Report Type: Spontaneous
  Country: US (occurrence: US)
  Receive Date: 20150201
  Receipt Date: 20150201
  Transmission Date: 20150721
  Serious: Yes (Life-Threatening, Hospitalization)
  Sender: FDA-Public Use
  Company Number: US-MYLANLABS-2015M1002151

PATIENT

DRUGS (5)
  1. AMIODARONE [Suspect]
     Active Substance: AMIODARONE
     Indication: VENTRICULAR TACHYCARDIA
     Dosage: A DOSE
     Route: 050
  2. ATENOLOL. [Concomitant]
     Active Substance: ATENOLOL
     Indication: VENTRICULAR TACHYCARDIA
     Route: 065
  3. ADENOSINE. [Concomitant]
     Active Substance: ADENOSINE
     Indication: VENTRICULAR TACHYCARDIA
     Dosage: MULTIPLE DOSES
     Route: 065
  4. DILTIAZEM [Concomitant]
     Active Substance: DILTIAZEM
     Indication: VENTRICULAR TACHYCARDIA
     Dosage: A DOSE
     Route: 065
  5. SOTALOL. [Concomitant]
     Active Substance: SOTALOL
     Indication: VENTRICULAR TACHYCARDIA
     Route: 065

REACTIONS (3)
  - Anaphylactic shock [Recovered/Resolved]
  - Haemodynamic instability [Recovered/Resolved]
  - Cardiac arrest [Recovered/Resolved]
